FAERS Safety Report 25097549 (Version 1)
Quarter: 2025Q1

REPORT INFORMATION
  Report Type: Spontaneous
  Country: US (occurrence: US)
  Receive Date: 20250320
  Receipt Date: 20250320
  Transmission Date: 20250409
  Serious: No
  Sender: SANOFI AVENTIS
  Company Number: US-SA-2025SA080351

PATIENT
  Sex: Female
  Weight: 71.36 kg

DRUGS (6)
  1. DUPIXENT [Suspect]
     Active Substance: DUPILUMAB
     Indication: Nasal polyps
     Dosage: 300 MG, QOW
     Route: 058
  2. PROGESTERONE [Concomitant]
     Active Substance: PROGESTERONE
  3. LYLLANA [Concomitant]
     Active Substance: ESTRADIOL
  4. LEVOTHYROXINE SODIUM [Concomitant]
     Active Substance: LEVOTHYROXINE SODIUM
  5. ESTRADIOL [Concomitant]
     Active Substance: ESTRADIOL
  6. ESTROGENS [Concomitant]
     Active Substance: ESTROGENS

REACTIONS (2)
  - COVID-19 [Unknown]
  - Fatigue [Unknown]

NARRATIVE: CASE EVENT DATE: 20250101
